FAERS Safety Report 5076369-4 (Version None)
Quarter: 2006Q3

REPORT INFORMATION
  Report Type: 
  Country: None (occurrence: None)
  Receive Date: 20060807
  Receipt Date: 20060725
  Transmission Date: 20061208
  Serious: Yes (Hospitalization)
  Sender: FDA-Public Use
  Company Number: 2006092212

PATIENT
  Age: 76 Year
  Sex: Female

DRUGS (4)
  1. PREDNISOLONE [Suspect]
     Indication: RHEUMATOID ARTHRITIS
     Dosage: 5 MG, ORAL
     Route: 048
  2. METHOTREXATE [Suspect]
     Indication: RHEUMATOID ARTHRITIS
     Dosage: 7.5 MG (INTERVAL: ONCE A WEEK), ORAL
     Route: 048
  3. HYDROXYZINE HCL [Suspect]
     Indication: RHEUMATOID ARTHRITIS
     Dosage: 300 MG, ORAL
     Route: 048
  4. ALENDRONATE SODIUM [Suspect]
     Indication: OSTEOPOROSIS
     Dosage: 70 MG (INTERVAL: ONCE A WEEK), ORAL
     Route: 048

REACTIONS (10)
  - ACTINOMYCOSIS [None]
  - ARTHRALGIA [None]
  - FINGER DEFORMITY [None]
  - GINGIVAL DISORDER [None]
  - HAEMATOCRIT DECREASED [None]
  - HAEMOGLOBIN DECREASED [None]
  - OSTEOMYELITIS [None]
  - OSTEONECROSIS [None]
  - PURULENT DISCHARGE [None]
  - SWELLING FACE [None]
